FAERS Safety Report 6312876-1 (Version None)
Quarter: 2009Q3

REPORT INFORMATION
  Report Type: 
  Country: None (occurrence: None)
  Receive Date: 20090814
  Receipt Date: 20090731
  Transmission Date: 20100115
  Serious: Yes (Hospitalization)
  Sender: FDA-Public Use
  Company Number: 2009PL000244

PATIENT
  Age: 61 Year
  Sex: Female
  Weight: 68.0396 kg

DRUGS (8)
  1. LOTRONEX [Suspect]
     Indication: IRRITABLE BOWEL SYNDROME
     Dosage: 1.0 MG; QD; PO
     Route: 048
     Dates: start: 20030101
  2. NEXIUM [Concomitant]
  3. VIVELLE-DOT [Concomitant]
  4. LIPITOR [Concomitant]
  5. XYZAL [Concomitant]
  6. IBUPROFEN [Concomitant]
  7. MULTI-VITAMINS [Concomitant]
  8. BONIVA [Concomitant]

REACTIONS (3)
  - COLITIS ISCHAEMIC [None]
  - INCORRECT DOSE ADMINISTERED [None]
  - OSTEONECROSIS [None]
